FAERS Safety Report 4492036-X (Version None)
Quarter: 2004Q4

REPORT INFORMATION
  Report Type: 
  Country: None (occurrence: None)
  Receive Date: 20041029
  Receipt Date: 20041018
  Transmission Date: 20050328
  Serious: Yes (Death)
  Sender: FDA-Public Use
  Company Number: 2004-BP-10224YA

PATIENT
  Age: 80 Year
  Sex: Male

DRUGS (2)
  1. FLOMAX [Suspect]
     Dosage: 0.4 MG
     Route: 048
     Dates: end: 20040925
  2. GABAPENTIN [Suspect]
     Indication: NEURALGIA

REACTIONS (1)
  - MYOCARDIAL ISCHAEMIA [None]
